FAERS Safety Report 6647965-5 (Version None)
Quarter: 2010Q1

REPORT INFORMATION
  Report Type: 
  Country: None (occurrence: None)
  Receive Date: 20100324
  Receipt Date: 20100310
  Transmission Date: 20100710
  Serious: Yes (Other)
  Sender: FDA-Public Use
  Company Number: SY-ELI_LILLY_AND_COMPANY-SY201002004652

PATIENT
  Age: 50 Year
  Sex: Female
  Weight: 106 kg

DRUGS (9)
  1. BYETTA [Suspect]
     Indication: TYPE 2 DIABETES MELLITUS
     Dosage: 5 UG, 2/D
     Route: 058
     Dates: start: 20091119, end: 20091218
  2. BYETTA [Suspect]
     Dosage: 10 UG, 2/D
     Route: 058
     Dates: start: 20091219, end: 20100125
  3. METFORMIN HCL [Concomitant]
     Indication: DIABETES MELLITUS
     Dosage: 2000 MG, UNKNOWN
     Route: 065
  4. MIXTARD HUMAN 70/30 [Concomitant]
     Indication: DIABETES MELLITUS
     Dosage: UNK, 2/D
     Route: 058
  5. AMFEPRAMONE [Concomitant]
     Indication: HYPERLIPIDAEMIA
     Dosage: 300 MG, UNKNOWN
     Route: 048
  6. FENOFIBRATE [Concomitant]
     Indication: HYPERTRIGLYCERIDAEMIA
     Dosage: UNK, UNKNOWN
     Route: 065
  7. NORVASK [Concomitant]
     Indication: HYPERTENSION
     Dosage: 5 MG, UNKNOWN
     Route: 048
  8. NATRILIX [Concomitant]
     Indication: HYPERTENSION
     Dosage: UNK, DAILY (1/D)
     Route: 048
  9. GABAPENTIN [Concomitant]
     Indication: NEUROPATHY PERIPHERAL
     Dosage: 300 MG, 2/D
     Route: 048

REACTIONS (5)
  - DIARRHOEA [None]
  - FATIGUE [None]
  - HYPERSENSITIVITY [None]
  - OFF LABEL USE [None]
  - PANCREATITIS [None]
